FAERS Safety Report 5251869-2 (Version None)
Quarter: 2007Q1

REPORT INFORMATION
  Report Type: 
  Country: None (occurrence: None)
  Receive Date: 20070228
  Receipt Date: 20070216
  Transmission Date: 20070707
  Serious: Yes (Hospitalization, Other)
  Sender: FDA-Public Use
  Company Number: FR-PFIZER INC-2006114583

PATIENT
  Sex: Male
  Weight: 95 kg

DRUGS (5)
  1. LYRICA [Suspect]
     Indication: NEURALGIA
     Route: 048
  2. ALLOPURINOL SODIUM [Suspect]
     Indication: HYPERURICAEMIA
     Route: 048
  3. SKENAN [Concomitant]
     Indication: NEURALGIA
     Route: 048
  4. LODALES [Concomitant]
     Indication: HYPERCHOLESTEROLAEMIA
     Route: 048
     Dates: start: 20050101
  5. LOVENOX [Concomitant]
     Indication: BEDRIDDEN
     Route: 058
     Dates: start: 20060819, end: 20060828

REACTIONS (13)
  - ABDOMINAL PAIN [None]
  - AORTIC ANEURYSM [None]
  - CUTANEOUS VASCULITIS [None]
  - ECZEMA VESICULAR [None]
  - EMPHYSEMA [None]
  - EOSINOPHILIA [None]
  - HYPERGAMMAGLOBULINAEMIA [None]
  - LYMPHADENOPATHY [None]
  - OEDEMA [None]
  - PYREXIA [None]
  - RASH [None]
  - SPLENOMEGALY [None]
  - THROMBOCYTOPENIA [None]
